FAERS Safety Report 13999111 (Version 1)
Quarter: 2017Q3

REPORT INFORMATION
  Report Type: Spontaneous
  Country: JP (occurrence: JP)
  Receive Date: 20170922
  Receipt Date: 20170922
  Transmission Date: 20171128
  Serious: Yes (Hospitalization)
  Sender: FDA-Public Use
  Company Number: JP-UCBSA-2017036955

PATIENT
  Age: 58 Year
  Sex: Male

DRUGS (1)
  1. E KEPPRA [Suspect]
     Active Substance: LEVETIRACETAM
     Indication: EPILEPSY
     Dosage: 7000 MG, TOTAL (500MG X 14 DAYS) (RECEIVED A 14-DAY SUPPLY OF LEVETIRACETAM AT ONCE)
     Route: 048
     Dates: start: 20170901, end: 20170901

REACTIONS (3)
  - Off label use [Unknown]
  - Somnolence [Unknown]
  - Overdose [Unknown]

NARRATIVE: CASE EVENT DATE: 201709
